FAERS Safety Report 4990179-5 (Version None)
Quarter: 2006Q2

REPORT INFORMATION
  Report Type: 
  Country: None (occurrence: None)
  Receive Date: 20060503
  Receipt Date: 20060425
  Transmission Date: 20061013
  Serious: Yes (Hospitalization)
  Sender: FDA-Public Use
  Company Number: US-MERCK-0604USA04053

PATIENT
  Age: 57 Year
  Sex: Male
  Weight: 114 kg

DRUGS (11)
  1. VIOXX [Suspect]
     Indication: ARTHRITIS
     Route: 048
     Dates: start: 19990101, end: 20040901
  2. COUMADIN [Concomitant]
     Route: 065
  3. LASIX [Concomitant]
     Route: 065
  4. POTASSIUM (UNSPECIFIED) [Concomitant]
     Route: 065
  5. MAVIK [Concomitant]
     Route: 065
  6. PRAVACHOL [Concomitant]
     Route: 065
  7. NEXIUM [Concomitant]
     Route: 065
  8. VIAGRA [Concomitant]
     Route: 065
  9. CRESTOR [Concomitant]
     Route: 065
  10. ATENOLOL [Concomitant]
     Route: 065
  11. CAPTOPRIL [Concomitant]
     Route: 065

REACTIONS (1)
  - MYOCARDIAL INFARCTION [None]
